FAERS Safety Report 5122234-3 (Version None)
Quarter: 2006Q4

REPORT INFORMATION
  Report Type: 
  Country: None (occurrence: None)
  Receive Date: 20061003
  Receipt Date: 20060918
  Transmission Date: 20070319
  Serious: Yes (Hospitalization)
  Sender: FDA-Public Use
  Company Number: T200601030

PATIENT
  Age: 74 Year
  Sex: Male
  Weight: 88 kg

DRUGS (24)
  1. HYDROCODONE BITARTRATE + ACETAMINOPHEN [Suspect]
     Dosage: SEE IMAGE, ORAL
     Route: 048
     Dates: start: 20050801, end: 20051221
  2. SUTENT [Suspect]
     Indication: RENAL CELL CARCINOMA STAGE UNSPECIFIED
     Dosage: 37.5 MG, QD, ORAL
     Route: 048
     Dates: start: 20051026
  3. DIAZEPAM [Suspect]
     Dosage: SEE IMAGE
     Route: 048
     Dates: start: 20050101
  4. DIAZEPAM [Suspect]
     Dosage: SEE IMAGE
     Route: 048
     Dates: start: 20051221
  5. AMBIEN [Suspect]
     Dosage: SEE IMAGE
     Route: 048
     Dates: start: 20050101
  6. AMBIEN [Suspect]
     Dosage: SEE IMAGE
     Route: 048
     Dates: start: 20051221
  7. DOXEPIN (DOXEPIN) 20MG [Suspect]
     Dosage: SEE IMAGE
     Route: 048
     Dates: start: 20050101
  8. DOXEPIN (DOXEPIN) 20MG [Suspect]
     Dosage: SEE IMAGE
     Route: 048
     Dates: start: 20051201
  9. OXYCONTIN [Concomitant]
  10. METFORMIN HCL [Concomitant]
  11. LANTUS [Concomitant]
  12. LIPITOR [Concomitant]
  13. ZETIA [Concomitant]
  14. ALTACE [Concomitant]
  15. ATENOLOL [Concomitant]
  16. TAMSULOSIN HYDROCHLORIDE (TAMSULOSIN HYDROCHLORIDE) [Concomitant]
  17. PROSCAR [Concomitant]
  18. ZANTAC [Concomitant]
  19. MONTELUKAST SODIUM (MONTELUKAST SODIUM) [Concomitant]
  20. SEREVENT [Concomitant]
  21. FLOVENT [Concomitant]
  22. ACTIGALL [Concomitant]
  23. REMERON [Concomitant]
  24. STOOL SOFTENER (DOCUSATE SODIUM) [Concomitant]

REACTIONS (4)
  - HYPOTENSION [None]
  - METABOLIC ENCEPHALOPATHY [None]
  - SEDATION [None]
  - TOXIC INDUCED ENCEPHALOPATHY [None]
